FAERS Safety Report 21268258 (Version 1)
Quarter: 2022Q3

REPORT INFORMATION
  Report Type: Spontaneous
  Country: GB (occurrence: GB)
  Receive Date: 20220830
  Receipt Date: 20220830
  Transmission Date: 20221027
  Serious: Yes (Hospitalization)
  Sender: FDA-Public Use
  Company Number: None

PATIENT
  Age: 83 Year

DRUGS (20)
  1. OMEPRAZOLE [Suspect]
     Active Substance: OMEPRAZOLE
     Dosage: 20MG GASTRO-RESISTANT CAPSULES ONE TO BE TAKEN EACH DAY
  2. ASPIRIN [Concomitant]
     Active Substance: ASPIRIN
     Dosage: 75MG DISPERSIBLE TABLETS TAKE ONE TABLET EACH DAY DISSOLVED IN WATER
  3. ATORVASTATIN [Concomitant]
     Active Substance: ATORVASTATIN
     Dosage: 40MG TABLETS TAKE ONE DAILY
  4. CARBOCYSTEINE [Concomitant]
     Active Substance: CARBOCYSTEINE
  5. DOCUSATE [Concomitant]
     Active Substance: DOCUSATE
     Dates: start: 20220810
  6. DOCUSATE [Concomitant]
     Active Substance: DOCUSATE
     Dosage: 100MG CAPSULES 2 TWICE A DAY PRN
  7. KETOCONAZOLE [Concomitant]
     Active Substance: KETOCONAZOLE
     Dosage: 2% SHAMPOO APPLY TWICE EACH WEEK AS DIRECTED 120 ML (POD)
  8. MOMETASONE [Concomitant]
     Active Substance: MOMETASONE
     Route: 002
  9. MOMETASONE [Concomitant]
     Active Substance: MOMETASONE
     Dosage: 50 MICROGRAMS/DOSE NASAL SPRAY TWO SPRAYS TO BE USED IN EACH NOSTRIL TWICE A DAY, THEN REDUCE WHE...
  10. ACETAMINOPHEN [Concomitant]
     Active Substance: ACETAMINOPHEN
     Dosage: 500MG TABLETS TAKE ONE OR TWO TABLETS FOUR TIMES A DAY, MAX 8 PER 24 HOURS PERIOD
  11. RAMIPRIL [Concomitant]
     Active Substance: RAMIPRIL
     Dosage: 1.25MG CAPSULES ONE TO BE TAKEN EACH DAY
  12. ALBUTEROL [Concomitant]
     Active Substance: ALBUTEROL
     Dosage: 100MICROGRAMS/DOSE INHALER CFC FREE WHEN REQUIRED
  13. TAMSULOSIN [Concomitant]
     Active Substance: TAMSULOSIN
     Dosage: 400MICROGRAM MODIFIED-RELEASE CAPSULES TAKE ONE EACH DAY
  14. THIAMINE [Concomitant]
     Active Substance: THIAMINE
     Dosage: 100MG TABLETS ONE TO BE TAKEN THREE TIMES A DAY
  15. FERROUS SULFATE [Concomitant]
     Active Substance: FERROUS SULFATE
     Dosage: 200MG TABLETS ONE TO BE TAKEN TWICE A DAY
  16. BUTYLSCOPOLAMINE BROMIDE [Concomitant]
     Active Substance: BUTYLSCOPOLAMINE BROMIDE
     Dosage: 10MG TABLETS ONE TO BE TAKEN FOUR TIMES A DAY WHEN REQUIRED- PATIENT TAKES REG (POD)
  17. NACSYS [Concomitant]
     Dosage: 600MG EFFERVESCENT TABLETS ONE TO BE DISSOLVED IN WATER EACH DAY.
  18. SENNA [Concomitant]
     Active Substance: SENNA LEAF\SENNOSIDES\SENNOSIDES A AND B
     Indication: Constipation
     Dosage: 7.5MG TABLETS ONE OR TWO TO BE TAKEN AT NIGHT PRN
  19. SODIUM CHLORIDE [Concomitant]
     Active Substance: SODIUM CHLORIDE
     Dosage: 0.9% NEBULISER LIQUID 2.5ML UNIT DOSE AMPOULES AS DIRECTED IN NEBULISER BD 56 (POD)
  20. BECLOMETHASONE DIPROPIONATE\FORMOTEROL FUMARATE\GLYCOPYRROLATE [Concomitant]
     Active Substance: BECLOMETHASONE DIPROPIONATE\FORMOTEROL FUMARATE\GLYCOPYRROLATE
     Dosage: 87MICROGRAMS/DOSE / 5MICROGRAMS/DOSE / 9MICROGRAMS/DOSE INHALER (CHIESI LTD) TWO PUFFS TO BE INHA...

REACTIONS (1)
  - Hyponatraemia [Unknown]
